FAERS Safety Report 17169370 (Version 1)
Quarter: 2019Q4

REPORT INFORMATION
  Report Type: Spontaneous
  Country: ES (occurrence: ES)
  Receive Date: 20191218
  Receipt Date: 20191218
  Transmission Date: 20200122
  Serious: Yes (Other)
  Sender: FDA-Public Use
  Company Number: ES-TEVA-2019-ES-1152255

PATIENT
  Age: 55 Year
  Sex: Female

DRUGS (1)
  1. ENALAPRIL 20 MG COMPRIMIDO [Suspect]
     Active Substance: ENALAPRIL
     Dosage: 20 MG
     Route: 048
     Dates: start: 20140613, end: 20191122

REACTIONS (3)
  - Localised oedema [Unknown]
  - Erythema [Unknown]
  - Face oedema [Unknown]

NARRATIVE: CASE EVENT DATE: 20191121
